FAERS Safety Report 19731362 (Version 1)
Quarter: 2021Q3

REPORT INFORMATION
  Report Type: Spontaneous
  Country: US (occurrence: US)
  Receive Date: 20210820
  Receipt Date: 20210820
  Transmission Date: 20211014
  Serious: No
  Sender: FDA-Public Use
  Company Number: US-SA-2021SA276595

PATIENT

DRUGS (4)
  1. PLAVIX [Suspect]
     Active Substance: CLOPIDOGREL BISULFATE
  2. ELIQUIS [Concomitant]
     Active Substance: APIXABAN
     Dosage: 2 DF, BID
  3. XARELTO [Concomitant]
     Active Substance: RIVAROXABAN
  4. BISTOLIC [Concomitant]

REACTIONS (5)
  - Abdominal discomfort [Unknown]
  - Chromaturia [Unknown]
  - Nail discolouration [Unknown]
  - Feeling abnormal [Unknown]
  - Scoliosis [Unknown]
